FAERS Safety Report 10263880 (Version 1)
Quarter: 2014Q2

REPORT INFORMATION
  Report Type: Spontaneous
  Country: US (occurrence: US)
  Receive Date: 20140627
  Receipt Date: 20140627
  Transmission Date: 20141212
  Serious: No
  Sender: FDA-Public Use
  Company Number: US-009507513-1406USA008748

PATIENT
  Age: 62 Year
  Sex: Female
  Weight: 67.12 kg

DRUGS (4)
  1. ASMANEX HFA [Suspect]
     Dosage: UNK
     Dates: start: 20140504, end: 20140506
  2. XOPENEX HFA [Suspect]
     Indication: ASTHMA
     Dosage: 2 DF, QID
     Route: 055
     Dates: start: 20140504, end: 20140506
  3. XOPENEX HFA [Suspect]
     Indication: EMPHYSEMA
  4. SPIRIVA [Suspect]
     Dosage: UNK
     Dates: start: 20140504, end: 20140506

REACTIONS (6)
  - Feeling abnormal [Not Recovered/Not Resolved]
  - Dizziness [Not Recovered/Not Resolved]
  - Vomiting [Not Recovered/Not Resolved]
  - Fear [Unknown]
  - Nausea [Not Recovered/Not Resolved]
  - Somnolence [Not Recovered/Not Resolved]
